FAERS Safety Report 9877082 (Version 7)
Quarter: 2015Q1

REPORT INFORMATION
  Report Type: Report from Study
  Country: CA (occurrence: CA)
  Receive Date: 20140206
  Receipt Date: 20150305
  Transmission Date: 20150721
  Serious: Yes (Other)
  Sender: FDA-Public Use
  Company Number: CA-ROCHE-1345209

PATIENT
  Age: 71 Year
  Sex: Female
  Weight: 61.2 kg

DRUGS (14)
  1. RITUXAN [Suspect]
     Active Substance: RITUXIMAB
     Indication: GRANULOMATOSIS WITH POLYANGIITIS
     Dosage: LAST DOSE OF RITUXAN: 23-SEP-2014
     Route: 042
     Dates: start: 2010
  2. RITUXAN [Suspect]
     Active Substance: RITUXIMAB
     Indication: RHEUMATOID ARTHRITIS
  3. METHYLPREDNISOLONE. [Concomitant]
     Active Substance: METHYLPREDNISOLONE
     Indication: PREMEDICATION
     Route: 042
  4. ZOPICLONE [Concomitant]
     Active Substance: ZOPICLONE
  5. TACROLIMUS. [Concomitant]
     Active Substance: TACROLIMUS
  6. IMURAN [Concomitant]
     Active Substance: AZATHIOPRINE
  7. PREDNISONE. [Concomitant]
     Active Substance: PREDNISONE
  8. ACETYLSALICYLIC ACID [Concomitant]
     Active Substance: ASPIRIN
     Dosage: LOW DOSE
     Route: 065
  9. RABEPRAZOLE [Concomitant]
     Active Substance: RABEPRAZOLE
  10. RABEPRAZOLE [Concomitant]
     Active Substance: RABEPRAZOLE
  11. ATORVASTATIN [Concomitant]
     Active Substance: ATORVASTATIN
  12. DIPHENHYDRAMINE [Concomitant]
     Active Substance: DIPHENHYDRAMINE
     Indication: PREMEDICATION
     Route: 048
  13. LEVOTHYROXINE [Concomitant]
     Active Substance: LEVOTHYROXINE
  14. ACETAMINOPHEN. [Concomitant]
     Active Substance: ACETAMINOPHEN
     Indication: PREMEDICATION
     Route: 048

REACTIONS (7)
  - Cataract [Unknown]
  - Renal impairment [Unknown]
  - Tooth disorder [Unknown]
  - Heart rate decreased [Unknown]
  - Hypertension [Unknown]
  - Anxiety [Unknown]
  - Laceration [Unknown]

NARRATIVE: CASE EVENT DATE: 20140311
